FAERS Safety Report 10029482 (Version 1)
Quarter: 2014Q1

REPORT INFORMATION
  Report Type: Spontaneous
  Country: US (occurrence: US)
  Receive Date: 20140322
  Receipt Date: 20140322
  Transmission Date: 20141002
  Serious: Yes (Hospitalization)
  Sender: FDA-Public Use
  Company Number: PHHY2014US031467

PATIENT
  Age: 15 Year
  Sex: Male

DRUGS (1)
  1. IBUPROFEN [Suspect]
     Dosage: 1000 MG, THREE TO FOUR TIMES A DAY

REACTIONS (9)
  - Drug abuse [Recovered/Resolved]
  - Liver abscess [Recovered/Resolved]
  - Peptic ulcer [Recovered/Resolved]
  - Abdominal tenderness [Recovered/Resolved]
  - Fatigue [Recovered/Resolved]
  - Decreased appetite [Recovered/Resolved]
  - Leukocytosis [Recovered/Resolved]
  - Granulocytosis [Recovered/Resolved]
  - Weight decreased [Recovered/Resolved]
